FAERS Safety Report 17009241 (Version 2)
Quarter: 2019Q4

REPORT INFORMATION
  Report Type: Spontaneous
  Country: JP (occurrence: JP)
  Receive Date: 20191108
  Receipt Date: 20191115
  Transmission Date: 20200122
  Serious: Yes (Disabling)
  Sender: FDA-Public Use
  Company Number: JP-009507513-1911JPN003077

PATIENT
  Age: 43 Year
  Sex: Male

DRUGS (3)
  1. MONTELUKAST SODIUM. [Suspect]
     Active Substance: MONTELUKAST SODIUM
     Indication: SEASONAL ALLERGY
     Dosage: 10 MILLIGRAM, QD
     Route: 048
     Dates: start: 201903, end: 201904
  2. MYTEAR PINT CARE EX [Suspect]
     Active Substance: ALLANTOIN\. ALPHA.-TOCOPHEROL ACETATE, D-\CHLORPHENIRAMINE MALEATE\NEOSTIGMINE METHYLSULFATE\PANTHENOL\POTASSIUM ASPARTATE
     Indication: ASTHENOPIA
     Dosage: UNK
     Route: 047
     Dates: start: 201908, end: 20191102
  3. FEXOFENADINE HYDROCHLORIDE. [Suspect]
     Active Substance: FEXOFENADINE HYDROCHLORIDE
     Indication: DERMATITIS ATOPIC
     Dosage: 120 MILLIGRAM, QD
     Route: 048
     Dates: start: 201809, end: 20191102

REACTIONS (1)
  - Alopecia areata [Not Recovered/Not Resolved]

NARRATIVE: CASE EVENT DATE: 201904
